FAERS Safety Report 7909232 (Version 3)
Quarter: 2012Q4

REPORT INFORMATION
  Report Type: 
  Country: US (occurrence: US)
  Receive Date: 20110421
  Receipt Date: 20121127
  Transmission Date: 20130627
  Serious: Yes (Other)
  Sender: FDA-Public Use
  Company Number: US-ASTRAZENECA-2010SE50300

PATIENT
  Age: 93 Year
  Sex: Female

DRUGS (1)
  1. TOPROL XL [Suspect]
     Route: 048

REACTIONS (7)
  - Fall [Unknown]
  - Contusion [Unknown]
  - Rib fracture [Unknown]
  - Multiple allergies [Unknown]
  - Macular degeneration [Unknown]
  - Mobility decreased [Unknown]
  - Visual impairment [Unknown]
